FAERS Safety Report 17936257 (Version 1)
Quarter: 2020Q2

REPORT INFORMATION
  Report Type: Spontaneous
  Country: US (occurrence: US)
  Receive Date: 20200624
  Receipt Date: 20200624
  Transmission Date: 20200714
  Serious: No
  Sender: FDA-Public Use
  Company Number: US-MYLANLABS-2020M1056557

PATIENT
  Age: 72 Year
  Sex: Male

DRUGS (2)
  1. METATIME [Concomitant]
     Dosage: UNK
  2. RIVASTIGMINE TRANSDERMAL SYSTEM [Suspect]
     Active Substance: RIVASTIGMINE
     Indication: DEMENTIA
     Dosage: 13.3 MILLIGRAM, QD
     Route: 062

REACTIONS (5)
  - Dizziness [Recovered/Resolved]
  - Malaise [Recovered/Resolved]
  - Accidental overdose [Recovered/Resolved]
  - Product adhesion issue [Not Recovered/Not Resolved]
  - Wrong technique in product usage process [Recovered/Resolved]

NARRATIVE: CASE EVENT DATE: 20200609
